FAERS Safety Report 13812544 (Version 1)
Quarter: 2017Q3

REPORT INFORMATION
  Report Type: Spontaneous
  Country: US (occurrence: US)
  Receive Date: 20170728
  Receipt Date: 20170728
  Transmission Date: 20171127
  Serious: No
  Sender: FDA-Public Use
  Company Number: US-009507513-1707USA006470

PATIENT
  Age: 8 Year
  Sex: Male

DRUGS (5)
  1. FLUTICASONE. [Concomitant]
     Active Substance: FLUTICASONE
     Dosage: 1/DAILY
  2. ASMANEX [Suspect]
     Active Substance: MOMETASONE FUROATE
     Indication: ASTHMA
     Dosage: 1/DAILY
     Route: 055
     Dates: start: 201612, end: 20170710
  3. CETIRIZINE HYDROCHLORIDE. [Concomitant]
     Active Substance: CETIRIZINE HYDROCHLORIDE
     Dosage: 1/DAILY
  4. ASMANEX [Suspect]
     Active Substance: MOMETASONE FUROATE
     Dosage: 1/DAILY
     Dates: start: 201612, end: 20170710
  5. PROAIR HFA [Concomitant]
     Active Substance: ALBUTEROL SULFATE
     Dosage: AS NEEDED 1/DAILY

REACTIONS (3)
  - Allergic reaction to excipient [Recovering/Resolving]
  - Drug dose omission [Unknown]
  - Product container issue [Unknown]

NARRATIVE: CASE EVENT DATE: 20170605
